FAERS Safety Report 9396319 (Version 6)
Quarter: 2014Q3

REPORT INFORMATION
  Report Type: Spontaneous
  Country: US (occurrence: None)
  Receive Date: 20130708
  Receipt Date: 20140826
  Transmission Date: 20150326
  Serious: Yes (Congenital Anomaly)
  Sender: FDA-Public Use
  Company Number: ZYD-13-AE-172

PATIENT
  Age: 7 Month
  Sex: Female

DRUGS (2)
  1. RIBAVIRIN. [Suspect]
     Active Substance: RIBAVIRIN
     Indication: HEPATITIS C
     Dates: end: 201205
  2. PEGYLATED INTERFERON ALPHA NOS [Suspect]
     Active Substance: PEGINTERFERON ALFA-2A OR PEGINTERFERON ALFA-2B
     Indication: HEPATITIS C
     Dosage: SUBQ
     Route: 058
     Dates: end: 201205

REACTIONS (6)
  - Jaundice neonatal [None]
  - Maternal drugs affecting foetus [None]
  - Congenital tongue anomaly [None]
  - Atrial septal defect [None]
  - Congenital arterial malformation [None]
  - Infantile vomiting [None]

NARRATIVE: CASE EVENT DATE: 201303
